FAERS Safety Report 11137842 (Version 1)
Quarter: 2015Q2

REPORT INFORMATION
  Report Type: Spontaneous
  Country: US (occurrence: US)
  Receive Date: 20150526
  Receipt Date: 20150526
  Transmission Date: 20150821
  Serious: No
  Sender: FDA-Public Use
  Company Number: US-MALLINCKRODT-T201500270

PATIENT
  Age: 54 Year
  Sex: Male

DRUGS (2)
  1. H.P. ACTHAR [Suspect]
     Active Substance: CORTICOTROPIN
     Dosage: 40 UNITS, TWICE WKLY
     Route: 065
     Dates: start: 201501, end: 20150201
  2. H.P. ACTHAR [Suspect]
     Active Substance: CORTICOTROPIN
     Indication: LUPUS NEPHRITIS
     Dosage: 80 UNITS, TWICE WKLY
     Route: 005
     Dates: start: 20150109, end: 201501

REACTIONS (11)
  - Peripheral swelling [Recovered/Resolved]
  - Epistaxis [Recovered/Resolved]
  - Paraesthesia [Recovered/Resolved]
  - Blood glucose decreased [Recovered/Resolved]
  - Cold sweat [Recovered/Resolved]
  - Mania [Recovered/Resolved]
  - Muscle spasms [Recovered/Resolved]
  - Hunger [Recovered/Resolved]
  - Blood glucose increased [Recovered/Resolved]
  - Tremor [Recovered/Resolved]
  - Insomnia [Recovered/Resolved]

NARRATIVE: CASE EVENT DATE: 201501
